FAERS Safety Report 5879659-8 (Version None)
Quarter: 2008Q3

REPORT INFORMATION
  Report Type: 
  Country: None (occurrence: None)
  Receive Date: 20080912
  Receipt Date: 20080904
  Transmission Date: 20090109
  Serious: Yes (Hospitalization)
  Sender: FDA-Public Use
  Company Number: US-ABBOTT-08P-163-0474455-00

PATIENT
  Sex: Female
  Weight: 73.094 kg

DRUGS (13)
  1. HUMIRA [Suspect]
     Indication: PSORIATIC ARTHROPATHY
     Route: 058
     Dates: start: 20080624, end: 20080825
  2. CALCIUM WITH VITAMIN D [Concomitant]
     Indication: MINERAL SUPPLEMENTATION
     Route: 048
     Dates: start: 19980101
  3. LOMOTIL [Concomitant]
     Indication: COLITIS ULCERATIVE
     Route: 048
     Dates: start: 19990101
  4. DYAZIDE [Concomitant]
     Indication: HYPERTENSION
     Dosage: 37.5/25MG DAILY
     Route: 048
     Dates: start: 20010101
  5. VENLAFAXINE HYDROCHLORIDE [Concomitant]
     Indication: DEPRESSION
     Dosage: 150 MG DAILY
     Route: 048
     Dates: start: 20040101
  6. METOPROLOL TARTRATE [Concomitant]
     Indication: HYPERTENSION
     Route: 048
     Dates: start: 20070101
  7. LANSOPRAZOLE [Concomitant]
     Indication: GASTROOESOPHAGEAL REFLUX DISEASE
     Dosage: 30 MG DAILY
     Route: 048
     Dates: start: 20070101
  8. FLUNISOLIDE [Concomitant]
     Indication: SEASONAL ALLERGY
     Dosage: TWICE DAILY
     Route: 055
     Dates: start: 20070101
  9. COMBOCORT [Concomitant]
     Indication: SEASONAL ALLERGY
     Dosage: ONCE DAILY
     Route: 055
     Dates: start: 20070101
  10. NICOTINIC ACID [Concomitant]
     Indication: BLOOD CHOLESTEROL INCREASED
     Route: 048
     Dates: start: 20080825
  11. LOBID [Concomitant]
     Indication: PAIN
     Route: 048
     Dates: start: 20080825
  12. PRAVASTATIN [Concomitant]
     Indication: BLOOD CHOLESTEROL INCREASED
     Dosage: 80 MG DAILY
     Route: 048
     Dates: start: 20080825
  13. DILTIAZEM HCL [Concomitant]
     Indication: CARDIAC DISORDER
     Dosage: 180 MG DAILY
     Route: 048
     Dates: start: 20080825

REACTIONS (4)
  - BLOOD CHOLESTEROL INCREASED [None]
  - BLOOD TRIGLYCERIDES INCREASED [None]
  - FEELING ABNORMAL [None]
  - HEADACHE [None]
